FAERS Safety Report 25954953 (Version 1)
Quarter: 2025Q4

REPORT INFORMATION
  Report Type: Other
  Country: EU (occurrence: EU)
  Receive Date: 20251024
  Receipt Date: 20251024
  Transmission Date: 20260118
  Serious: Yes (Other)
  Sender: STRIDES
  Company Number: None

PATIENT
  Age: 61 Year
  Sex: Male

DRUGS (17)
  1. MYCOPHENOLATE MOFETIL [Suspect]
     Active Substance: MYCOPHENOLATE MOFETIL
     Indication: Diabetes mellitus
     Dosage: 1500 MILLIGRAM, UNKNOWN
     Route: 065
  2. MYCOPHENOLATE MOFETIL [Suspect]
     Active Substance: MYCOPHENOLATE MOFETIL
     Indication: Glomerulonephritis
     Dosage: 2000 MILLIGRAM, UNKNOWN
     Route: 065
  3. MYCOPHENOLATE MOFETIL [Suspect]
     Active Substance: MYCOPHENOLATE MOFETIL
     Dosage: 3000 MILLIGRAM, QD, 500 MG 3 TAB TWICE A DAY
     Route: 065
  4. METFORMIN [Suspect]
     Active Substance: METFORMIN HYDROCHLORIDE
     Indication: Diabetes mellitus
     Dosage: 1500 MILLIGRAM, QD
     Route: 065
     Dates: start: 201207
  5. METFORMIN [Suspect]
     Active Substance: METFORMIN HYDROCHLORIDE
     Indication: Type 3 diabetes mellitus
     Dosage: UNK, INCREASED DOSE
     Route: 065
     Dates: start: 201412
  6. PREDNISONE [Suspect]
     Active Substance: PREDNISONE
     Indication: Diabetes mellitus
     Dosage: 25 MILLIGRAM, QD
     Route: 065
  7. PREDNISONE [Suspect]
     Active Substance: PREDNISONE
     Indication: Glomerulonephritis
     Dosage: 30 MILLIGRAM, QD
     Route: 065
  8. PREDNISONE [Suspect]
     Active Substance: PREDNISONE
     Dosage: 35 MILLIGRAM, QD
     Route: 065
  9. PREDNISONE [Suspect]
     Active Substance: PREDNISONE
     Dosage: UNK
     Route: 065
     Dates: start: 201209
  10. PREDNISONE [Suspect]
     Active Substance: PREDNISONE
     Dosage: UNK
     Route: 065
     Dates: start: 201412
  11. PREDNISONE [Suspect]
     Active Substance: PREDNISONE
     Dosage: UNK
     Route: 065
     Dates: start: 201503
  12. CYCLOSPORINE [Suspect]
     Active Substance: CYCLOSPORINE
     Indication: Diabetes mellitus
     Dosage: 100 MILLIGRAM, QD
     Route: 065
     Dates: start: 201412
  13. CYCLOSPORINE [Suspect]
     Active Substance: CYCLOSPORINE
     Indication: Glomerulonephritis
     Dosage: 150 MILLIGRAM, QD
     Route: 065
  14. CYCLOSPORINE [Suspect]
     Active Substance: CYCLOSPORINE
     Dosage: 175 MILLIGRAM, QD
     Route: 065
  15. CYCLOSPORINE [Suspect]
     Active Substance: CYCLOSPORINE
     Dosage: UNK
     Route: 065
     Dates: start: 201305
  16. INSULIN NOS [Concomitant]
     Active Substance: INSULIN NOS
     Indication: Type 3 diabetes mellitus
     Dosage: UNK, 4 UNITS 20 MINUTES BEFORE DINNER
     Route: 065
     Dates: start: 201412
  17. INSULIN NOS [Concomitant]
     Active Substance: INSULIN NOS
     Dosage: UNK,DOSE INCREASED TO 6 UNITS BEFORE DINNER AND 4 UNITS BEFORE SUPPER
     Route: 065
     Dates: start: 201501

REACTIONS (6)
  - Type 3 diabetes mellitus [Unknown]
  - Hyperglycaemia [Unknown]
  - Blood glucose abnormal [Unknown]
  - Condition aggravated [Unknown]
  - Off label use [Unknown]
  - Drug ineffective [Unknown]

NARRATIVE: CASE EVENT DATE: 20120701
